FAERS Safety Report 20823369 (Version 4)
Quarter: 2024Q1

REPORT INFORMATION
  Report Type: Other
  Country: AU (occurrence: AU)
  Receive Date: 20220513
  Receipt Date: 20240117
  Transmission Date: 20240410
  Serious: Yes (Other)
  Sender: FDA-Public Use
  Company Number: AU-TOLMAR, INC.-22AU033617

PATIENT
  Age: 83 Year
  Sex: Male

DRUGS (2)
  1. ELIGARD [Suspect]
     Active Substance: LEUPROLIDE ACETATE
     Indication: Prostate cancer
     Dosage: 22.5 MILLIGRAM, Q 3 MONTH
     Dates: start: 20211208
  2. ELIGARD [Suspect]
     Active Substance: LEUPROLIDE ACETATE
     Dosage: 22.5 MILLIGRAM, Q 3 MONTH
     Dates: start: 20171117

REACTIONS (8)
  - Prostatic specific antigen increased [Unknown]
  - Metastases to bone [Not Recovered/Not Resolved]
  - Metastasis [Unknown]
  - Terminal state [Unknown]
  - Balance disorder [Unknown]
  - Injection site mass [Not Recovered/Not Resolved]
  - Injection site bruising [Not Recovered/Not Resolved]
  - Malaise [Unknown]

NARRATIVE: CASE EVENT DATE: 20211208
